APPROVED DRUG PRODUCT: OMNISCAN
Active Ingredient: GADODIAMIDE
Strength: 287MG/ML
Dosage Form/Route: INJECTABLE;INJECTION
Application: N020123 | Product #001
Applicant: GE HEALTHCARE
Approved: Jan 8, 1993 | RLD: Yes | RS: Yes | Type: RX